FAERS Safety Report 11160289 (Version 1)
Quarter: 2015Q2

REPORT INFORMATION
  Report Type: Report from Study
  Country: CO (occurrence: CO)
  Receive Date: 20150603
  Receipt Date: 20150603
  Transmission Date: 20150821
  Serious: Yes (Death, Other)
  Sender: FDA-Public Use
  Company Number: PHHY2015CO066352

PATIENT
  Sex: Female

DRUGS (4)
  1. SANDOSTATIN LAR DEPOT [Suspect]
     Active Substance: OCTREOTIDE ACETATE
     Indication: PANCREATIC CARCINOMA
     Dosage: 20 MG (1 DF), QMO (28 DAYS)
     Route: 065
     Dates: start: 20150327
  2. VERAPAMIL [Concomitant]
     Active Substance: VERAPAMIL HYDROCHLORIDE
     Indication: HYPERTENSION
     Dosage: UNK UNK, QD
     Route: 065
  3. LOSARTAN [Concomitant]
     Active Substance: LOSARTAN
     Indication: HYPERTENSION
     Dosage: UNK UNK, QD
     Route: 065
  4. SANDOSTATIN LAR DEPOT [Suspect]
     Active Substance: OCTREOTIDE ACETATE
     Dosage: 2 DF, UNK
     Route: 065
     Dates: start: 20150424

REACTIONS (5)
  - General physical health deterioration [Unknown]
  - Pain [Unknown]
  - Diarrhoea [Unknown]
  - Respiratory arrest [Fatal]
  - Dizziness [Unknown]
